FAERS Safety Report 22857527 (Version 3)
Quarter: 2023Q4

REPORT INFORMATION
  Report Type: Report from Study
  Country: US (occurrence: US)
  Receive Date: 20230823
  Receipt Date: 20231220
  Transmission Date: 20240109
  Serious: Yes (Hospitalization)
  Sender: FDA-Public Use
  Company Number: US-JAZZ PHARMACEUTICALS-2023-US-017701

PATIENT
  Sex: Female
  Weight: 55.5 kg

DRUGS (2)
  1. EPIDIOLEX [Suspect]
     Active Substance: CANNABIDIOL
     Indication: Epilepsy
     Dosage: 4ML BY MOUTH IN THE MORNING AND 5.5ML IN THE EVENING
     Route: 048
     Dates: start: 202106
  2. EPIDIOLEX [Suspect]
     Active Substance: CANNABIDIOL
     Indication: Epilepsy
     Dosage: 4.5 ML IN MORNING AND 7ML IN EVENING
     Route: 048
     Dates: start: 202310

REACTIONS (2)
  - Hospitalisation [Unknown]
  - Hospitalisation [Unknown]
